FAERS Safety Report 9547889 (Version 1)
Quarter: 2013Q2

REPORT INFORMATION
  Report Type: Spontaneous
  Country: US (occurrence: None)
  Receive Date: 20130628
  Receipt Date: 20130628
  Transmission Date: 20140414
  Serious: No
  Sender: FDA-Public Use
  Company Number: 394745

PATIENT
  Age: 53 Year
  Sex: Male
  Weight: 88 kg

DRUGS (7)
  1. MEPIVACAINE HYDROCHLORIDE [Suspect]
     Indication: NERVE BLOCK
     Dosage: 10CC, ONCE, INTRASCALENE, UNKNOWN
     Dates: start: 20090930, end: 20090930
  2. DEXAMETHASONE [Suspect]
     Dosage: 4MG, ONCE, INTRASCALENE BLOCK, UNKNOWN, OTHER
     Dates: start: 20090930, end: 20090930
  3. ROPIVACAINE [Suspect]
     Dosage: 10CC, ONCE, INTRASCALENE, UNKNOWN
     Dates: start: 20090930, end: 20090930
  4. FENTANYL [Concomitant]
  5. MIDAZOLAM [Concomitant]
  6. VITAMIN C [Concomitant]
  7. TRAMADOL [Concomitant]

REACTIONS (1)
  - Grand mal convulsion [None]
